FAERS Safety Report 16139752 (Version 1)
Quarter: 2019Q2

REPORT INFORMATION
  Report Type: Report from Study
  Country: US (occurrence: US)
  Receive Date: 20190401
  Receipt Date: 20190401
  Transmission Date: 20190711
  Serious: Yes (Hospitalization)
  Sender: FDA-Public Use
  Company Number: US-TORRENT-00007862

PATIENT
  Age: 19 Month
  Sex: Male
  Weight: 11 kg

DRUGS (1)
  1. LAMOTRIGINE. [Suspect]
     Active Substance: LAMOTRIGINE
     Indication: PRODUCT USED FOR UNKNOWN INDICATION
     Dosage: INGESTED 400 MG OF HIS PARENT^S LAMOTRIGINE
     Route: 048

REACTIONS (7)
  - Toxicity to various agents [Recovering/Resolving]
  - Vomiting [Recovering/Resolving]
  - Accidental overdose [Recovering/Resolving]
  - Confusional state [Recovering/Resolving]
  - Dysarthria [Recovering/Resolving]
  - Agitation [Recovering/Resolving]
  - Crying [Recovering/Resolving]
